APPROVED DRUG PRODUCT: COLESEVELAM HYDROCHLORIDE
Active Ingredient: COLESEVELAM HYDROCHLORIDE
Strength: 625MG
Dosage Form/Route: TABLET;ORAL
Application: A209038 | Product #001 | TE Code: AB
Applicant: ALKEM LABORATORIES LTD
Approved: Oct 5, 2018 | RLD: No | RS: No | Type: RX